FAERS Safety Report 7683034-3 (Version None)
Quarter: 2011Q3

REPORT INFORMATION
  Report Type: 
  Country: None (occurrence: None)
  Receive Date: 20110812
  Receipt Date: 20110812
  Transmission Date: 20111222
  Serious: Yes (Disabling)
  Sender: FDA-Public Use
  Company Number: None

PATIENT
  Sex: Male
  Weight: 84.369 kg

DRUGS (1)
  1. INVEGA SUSTENNA [Suspect]
     Indication: MENTAL DISORDER
     Dosage: 117 MG 30 DAYS 030
     Route: 030
     Dates: start: 20090917

REACTIONS (7)
  - RASH [None]
  - AKATHISIA [None]
  - HERPES ZOSTER [None]
  - MUSCLE RIGIDITY [None]
  - DYSTONIA [None]
  - TACHYCARDIA [None]
  - URTICARIA [None]
